FAERS Safety Report 16133184 (Version 8)
Quarter: 2024Q3

REPORT INFORMATION
  Report Type: Spontaneous
  Country: ES (occurrence: ES)
  Receive Date: 20190329
  Receipt Date: 20240826
  Transmission Date: 20241017
  Serious: Yes (Life-Threatening, Hospitalization)
  Sender: ROCHE
  Company Number: ES-SA-2019SA065755

PATIENT
  Age: 45 Year
  Sex: Male

DRUGS (10)
  1. MYCOPHENOLATE MOFETIL [Suspect]
     Active Substance: MYCOPHENOLATE MOFETIL
     Indication: Immunosuppressant drug therapy
     Route: 065
     Dates: start: 201704, end: 201704
  2. TACROLIMUS [Suspect]
     Active Substance: TACROLIMUS
     Indication: Immunosuppressant drug therapy
     Route: 065
  3. EZETIMIBE [Suspect]
     Active Substance: EZETIMIBE
     Indication: Lipids abnormal
     Route: 065
  4. ATORVASTATIN [Suspect]
     Active Substance: ATORVASTATIN
     Indication: Lipids abnormal
     Dosage: HIGH DOSE
     Route: 065
  5. PRALUENT [Suspect]
     Active Substance: ALIROCUMAB
     Indication: Dyslipidaemia
     Route: 065
     Dates: start: 201709
  6. PRALUENT [Suspect]
     Active Substance: ALIROCUMAB
     Indication: Hepatic function abnormal
  7. PITAVASTATIN [Suspect]
     Active Substance: PITAVASTATIN
     Indication: Lipids abnormal
     Dosage: HIGH DOSE
     Route: 065
  8. EVEROLIMUS [Suspect]
     Active Substance: EVEROLIMUS
     Indication: Immunosuppressant drug therapy
     Route: 065
     Dates: start: 201704, end: 201802
  9. PREDNISONE [Suspect]
     Active Substance: PREDNISONE
     Indication: Immunosuppressant drug therapy
     Route: 065
  10. AZATHIOPRINE [Concomitant]
     Active Substance: AZATHIOPRINE
     Dosage: UNK
     Dates: start: 201802

REACTIONS (18)
  - Hypotension [Recovered/Resolved]
  - Pyrexia [Recovered/Resolved]
  - Metabolic acidosis [Recovered/Resolved]
  - Pneumonia [Recovered/Resolved]
  - Anuria [Recovered/Resolved]
  - Erythema [Recovered/Resolved]
  - Odynophagia [Recovered/Resolved]
  - Dyslipidaemia [Recovered/Resolved]
  - Condition aggravated [Recovered/Resolved]
  - Sepsis [Recovered/Resolved]
  - Blood cholesterol increased [Recovering/Resolving]
  - Pruritus [Recovering/Resolving]
  - Hepatic function abnormal [Unknown]
  - Respiratory tract infection [Recovered/Resolved]
  - Hypercholesterolaemia [Recovering/Resolving]
  - Cough [Recovered/Resolved]
  - Sputum discoloured [Recovered/Resolved]
  - Lipids abnormal [Recovered/Resolved]

NARRATIVE: CASE EVENT DATE: 20170901
